FAERS Safety Report 15505122 (Version 1)
Quarter: 2018Q4

REPORT INFORMATION
  Report Type: Spontaneous
  Country: US (occurrence: US)
  Receive Date: 20181016
  Receipt Date: 20181016
  Transmission Date: 20190205
  Serious: Yes (Hospitalization)
  Sender: FDA-Public Use
  Company Number: US-ROCHE-2199239

PATIENT
  Sex: Female

DRUGS (2)
  1. COTELLIC [Suspect]
     Active Substance: COBIMETINIB
     Indication: MALIGNANT MELANOMA
     Dosage: 3 TABS FOR 21 DAYS EVERY 28 DAYS
     Route: 048
     Dates: start: 20180807
  2. ZELBORAF [Suspect]
     Active Substance: VEMURAFENIB
     Indication: MALIGNANT MELANOMA
     Dosage: 4 TABLETS BY MOUTH TWICE DAILY
     Route: 048
     Dates: start: 20180920

REACTIONS (3)
  - Pain [Unknown]
  - Pain in extremity [Unknown]
  - Localised infection [Unknown]
